FAERS Safety Report 21467260 (Version 3)
Quarter: 2023Q1

REPORT INFORMATION
  Report Type: Report from Study
  Country: US (occurrence: US)
  Receive Date: 20221017
  Receipt Date: 20230223
  Transmission Date: 20230417
  Serious: No
  Sender: FDA-Public Use
  Company Number: US-KYOWAKIRIN-2022BKK016105

PATIENT

DRUGS (2)
  1. CRYSVITA [Suspect]
     Active Substance: BUROSUMAB-TWZA
     Indication: Hereditary hypophosphataemic rickets
     Dosage: 10 MG, 1X/2 WEEKS
     Route: 058
     Dates: start: 20200318
  2. CRYSVITA [Suspect]
     Active Substance: BUROSUMAB-TWZA
     Dosage: 10 MG, 1X/2 WEEKS
     Route: 058

REACTIONS (2)
  - Blood phosphorus decreased [Unknown]
  - Blood phosphorus increased [Unknown]

NARRATIVE: CASE EVENT DATE: 20220609
